FAERS Safety Report 7458612-7 (Version None)
Quarter: 2011Q2

REPORT INFORMATION
  Report Type: 
  Country: None (occurrence: None)
  Receive Date: 20110504
  Receipt Date: 20110427
  Transmission Date: 20111010
  Serious: Yes (Other)
  Sender: FDA-Public Use
  Company Number: US-SANOFI-AVENTIS-2011SA018026

PATIENT
  Sex: Female

DRUGS (1)
  1. DDAVP INTRANASAL [Suspect]
     Indication: ENURESIS
     Dosage: A PARTIAL TUBE TWICE DAILY
     Route: 045
     Dates: start: 19990101

REACTIONS (3)
  - HEMIPARESIS [None]
  - CEREBROVASCULAR ACCIDENT [None]
  - BRAIN NEOPLASM [None]
